FAERS Safety Report 20040646 (Version 1)
Quarter: 2021Q4

REPORT INFORMATION
  Report Type: Spontaneous
  Country: US (occurrence: None)
  Receive Date: 20211108
  Receipt Date: 20211108
  Transmission Date: 20220303
  Serious: Yes (Other)
  Sender: FDA-Public Use
  Company Number: None

PATIENT
  Age: 72 Year

DRUGS (18)
  1. HIZENTRA [Suspect]
     Active Substance: HUMAN IMMUNOGLOBULIN G
     Indication: Immunodeficiency common variable
     Dosage: OTHER FREQUENCY : WEEKLY;?
     Route: 058
     Dates: start: 20140709
  2. Ambien 10mg PO nightly [Concomitant]
  3. Amlodipine 5mg PO daily [Concomitant]
  4. Astelin 137mcg inhaled BID [Concomitant]
  5. Atorvastatin 20mg PO daily [Concomitant]
  6. Breo Ellipta 200/25mcg inhaled BID [Concomitant]
  7. Budesonide 0.5/2mg inhaled BID [Concomitant]
  8. Coenzyme Q10 100mg PO daily [Concomitant]
  9. Duloxetine 60mg PO daily [Concomitant]
  10. Fluticasone 50mcg inhaled BID [Concomitant]
  11. Levalbuterol 1.25/3mg inhaled PRN [Concomitant]
  12. Lisinopril 40mg PO daily [Concomitant]
  13. Qvar 80mcg inhaled BID [Concomitant]
  14. Sertraline 75mg PO daily [Concomitant]
  15. Singulair 10mg PO daily [Concomitant]
  16. Spiriva handihaler 18mcg inhaled daily [Concomitant]
  17. Xolair 150mg SC every 3 weeks [Concomitant]
  18. Xopenex HFA 45mcg inhaled PRN [Concomitant]

REACTIONS (3)
  - Pruritus [None]
  - Product quality issue [None]
  - Therapy interrupted [None]

NARRATIVE: CASE EVENT DATE: 20211023
